FAERS Safety Report 7723527-3 (Version None)
Quarter: 2011Q3

REPORT INFORMATION
  Report Type: 
  Country: None (occurrence: None)
  Receive Date: 20110901
  Receipt Date: 20110818
  Transmission Date: 20111222
  Serious: Yes (Disabling, Other)
  Sender: FDA-Public Use
  Company Number: PHEH2011US01935

PATIENT
  Sex: Male

DRUGS (7)
  1. DIOVAN [Suspect]
     Dosage: 1 DF, QD
  2. VICODIN [Concomitant]
     Dosage: UNK UKN, UNK
  3. FUROSEMIDE [Concomitant]
     Dosage: UNK UKN, UNK
  4. UNKNOWN BLOOD PRESSURE MEDICATIONS [Suspect]
     Dosage: UNK UKN, UNK
  5. METOPROLOL TARTRATE [Concomitant]
     Dosage: UNK UKN, UNK
  6. METFORMIN [Concomitant]
     Dosage: UNK UKN, UNK
  7. DIGOXIN [Concomitant]
     Dosage: UNK UKN, UNK

REACTIONS (2)
  - CHEILITIS [None]
  - FALL [None]
